FAERS Safety Report 6193376-9 (Version None)
Quarter: 2009Q2

REPORT INFORMATION
  Report Type: 
  Country: None (occurrence: None)
  Receive Date: 20090514
  Receipt Date: 20090514
  Transmission Date: 20091009
  Serious: Yes (Hospitalization)
  Sender: FDA-Public Use
  Company Number: None

PATIENT
  Age: 78 Year
  Sex: Male
  Weight: 92 kg

DRUGS (1)
  1. LINEZOLID [Suspect]

REACTIONS (3)
  - CHEST PAIN [None]
  - DYSPNOEA [None]
  - HEADACHE [None]
